FAERS Safety Report 5752443-1 (Version None)
Quarter: 2008Q2

REPORT INFORMATION
  Report Type: 
  Country: None (occurrence: None)
  Receive Date: 20080529
  Receipt Date: 20080522
  Transmission Date: 20081010
  Serious: Yes (Hospitalization)
  Sender: FDA-Public Use
  Company Number: B0522611A

PATIENT
  Age: 21 Year
  Sex: Male

DRUGS (1)
  1. AUGMENTIN '125' [Suspect]
     Indication: DENTAL DISORDER PROPHYLAXIS
     Dosage: 1G PER DAY
     Route: 048
     Dates: start: 20080508, end: 20080508

REACTIONS (4)
  - ABASIA [None]
  - ANAPHYLACTIC SHOCK [None]
  - BURNING SENSATION [None]
  - FALL [None]
